FAERS Safety Report 7387688-0 (Version None)
Quarter: 2011Q1

REPORT INFORMATION
  Report Type: 
  Country: None (occurrence: None)
  Receive Date: 20110331
  Receipt Date: 20101014
  Transmission Date: 20110831
  Serious: Yes (Hospitalization)
  Sender: FDA-Public Use
  Company Number: US-BAYER-201023658NA

PATIENT
  Sex: Female
  Weight: 88.435 kg

DRUGS (15)
  1. ALBUTEROL [Concomitant]
     Dosage: UNK UNK, PRN
  2. ELESTAT [Concomitant]
     Dosage: 1 DROP RIGHT EYE, BID
  3. AMOXCL [Concomitant]
     Dosage: 500 MG, BID
  4. TYLENOL (CAPLET) [Concomitant]
  5. YAZ [Suspect]
     Indication: CONTRACEPTION
     Dosage: SAMPLES RECEIVED IN MAY-2006 (1 PACKET), QD
     Route: 048
     Dates: start: 20060601, end: 20061015
  6. CYCLOBENZAPRINE [Concomitant]
     Indication: MUSCLE RELAXANT THERAPY
     Dosage: 10 MG, BID
  7. ASCORBIC ACID [Concomitant]
  8. ANTIBIOTICS [Concomitant]
  9. HYDROMET [HOMATROPINE METHYLBROMIDE,HYDROCODONE BITARTRATE] [Concomitant]
     Dosage: 1 TSP, QID
  10. AZITHROMYCIN [Concomitant]
     Dosage: 250 MG, UNK
  11. NSAID'S [Concomitant]
     Dosage: UNK UNK, PRN
     Dates: start: 20060101
  12. NAPROXEN [Concomitant]
     Indication: DYSMENORRHOEA
     Dosage: UNK UNK, PRN
     Dates: start: 20060101
  13. OPHTHALMOLOGICALS [Concomitant]
     Dosage: 1 DROP RIGHT EYE, QID
  14. FLUTICASONE PROPIONATE [Concomitant]
     Dosage: 1 PUFF(S), OM
  15. ZYRTEC-D 12 HOUR [Concomitant]
     Dosage: 1 TAB, BID

REACTIONS (6)
  - SCAR [None]
  - MUSCULOSKELETAL CHEST PAIN [None]
  - PAIN IN EXTREMITY [None]
  - DEEP VEIN THROMBOSIS [None]
  - PULMONARY EMBOLISM [None]
  - BACK PAIN [None]
